FAERS Safety Report 17951552 (Version 1)
Quarter: 2020Q2

REPORT INFORMATION
  Report Type: Spontaneous
  Country: PL (occurrence: PL)
  Receive Date: 20200626
  Receipt Date: 20200626
  Transmission Date: 20200714
  Serious: Yes (Other)
  Sender: FDA-Public Use
  Company Number: NVSC2020PL177087

PATIENT
  Age: 71 Year
  Sex: Female
  Weight: 82 kg

DRUGS (3)
  1. LEVOFOLIC [Concomitant]
     Active Substance: LEUCOVORIN
     Indication: COLON CANCER
     Dosage: UNK (DOSE: 196)
     Route: 042
     Dates: start: 20191211, end: 20191213
  2. OXALIPLATIN. [Suspect]
     Active Substance: OXALIPLATIN
     Indication: COLON CANCER
     Dosage: DOSE: 166
     Route: 042
     Dates: start: 20191211, end: 20191213
  3. 5-FLUOROURACIL [Concomitant]
     Active Substance: FLUOROURACIL
     Indication: COLON CANCER
     Dosage: UNK (DOSE: 2060)
     Route: 042
     Dates: start: 20191211, end: 20191213

REACTIONS (1)
  - Venous thrombosis limb [Recovering/Resolving]

NARRATIVE: CASE EVENT DATE: 20191217
